FAERS Safety Report 7628732-2 (Version None)
Quarter: 2011Q3

REPORT INFORMATION
  Report Type: 
  Country: None (occurrence: None)
  Receive Date: 20110722
  Receipt Date: 20110713
  Transmission Date: 20111222
  Serious: Yes (Hospitalization)
  Sender: FDA-Public Use
  Company Number: JP-NOVOPROD-324947

PATIENT
  Age: 84 Year
  Sex: Male
  Weight: 56 kg

DRUGS (9)
  1. OMEPRAZOLE [Concomitant]
     Dosage: 10 MG, QD
     Route: 048
     Dates: start: 20100201
  2. LASIX [Concomitant]
     Dosage: 20 MG, QD
     Route: 048
     Dates: start: 20100810
  3. ZOLPIDEM [Concomitant]
     Dosage: 5 MG, QD
     Route: 048
     Dates: start: 20100201
  4. AMARYL [Concomitant]
     Route: 048
  5. ISOSORBIDE DINITRATE [Concomitant]
     Dosage: UNK
     Route: 062
     Dates: start: 20110118
  6. VICTOZA [Suspect]
     Indication: TYPE 2 DIABETES MELLITUS
     Dosage: 0.3 MG, QD
     Route: 058
     Dates: start: 20110308, end: 20110309
  7. PIARLE [Concomitant]
     Dosage: UNK
     Route: 048
     Dates: start: 20100201
  8. TEGRETOL [Concomitant]
     Dosage: 100 MG, QD
     Route: 048
     Dates: start: 20101211
  9. MAGNESIUM SULFATE [Concomitant]
     Dosage: 500 MG, QD
     Route: 048
     Dates: start: 20100201

REACTIONS (5)
  - FALL [None]
  - CONSTIPATION [None]
  - ABDOMINAL PAIN [None]
  - NAUSEA [None]
  - OPEN WOUND [None]
